FAERS Safety Report 10010531 (Version 3)
Quarter: 2014Q2

REPORT INFORMATION
  Report Type: Report from Study
  Country: CA (occurrence: CA)
  Receive Date: 20140314
  Receipt Date: 20140508
  Transmission Date: 20141212
  Serious: Yes (Hospitalization)
  Sender: FDA-Public Use
  Company Number: CA-BRISTOL-MYERS SQUIBB COMPANY-19963990

PATIENT
  Age: 80 Year
  Sex: Female

DRUGS (8)
  1. ORENCIA [Suspect]
     Indication: RHEUMATOID ARTHRITIS
     Dosage: 1DF=500-UNITS NOS?31OCT13-PER 2 WKS
     Dates: start: 20131031
  2. CITALOPRAM [Concomitant]
  3. ARICEPT [Concomitant]
  4. MIRTAZAPINE [Concomitant]
  5. ALENDRONATE [Concomitant]
  6. QUETIAPINE [Concomitant]
  7. AMIZIDE [Concomitant]
  8. TECTA [Concomitant]

REACTIONS (2)
  - Spinal column stenosis [Unknown]
  - Arthropathy [Not Recovered/Not Resolved]
